FAERS Safety Report 8494376-6 (Version None)
Quarter: 2012Q2

REPORT INFORMATION
  Report Type: 
  Country: None (occurrence: None)
  Receive Date: 20120628
  Receipt Date: 20120614
  Transmission Date: 20120825
  Serious: Yes (Hospitalization)
  Sender: FDA-Public Use
  Company Number: DSM-2012-00669

PATIENT
  Age: 56 Year
  Sex: Female

DRUGS (1)
  1. OLMESARTAN MEDOXOMIL [Suspect]
     Indication: HYPERTENSION
     Dosage: 20 MG (20 MG, 1 IN 1 D), ORAL
     Route: 048

REACTIONS (6)
  - HYPERTENSIVE CRISIS [None]
  - AORTIC ANEURYSM [None]
  - NERVE COMPRESSION [None]
  - DYSPHONIA [None]
  - AORTIC DISSECTION [None]
  - VOCAL CORD PARALYSIS [None]
